FAERS Safety Report 4567936-2 (Version None)
Quarter: 2005Q1

REPORT INFORMATION
  Report Type: 
  Country: None (occurrence: None)
  Receive Date: 20050131
  Receipt Date: 20050121
  Transmission Date: 20050727
  Serious: Yes (Death)
  Sender: FDA-Public Use
  Company Number: B0365381A

PATIENT

DRUGS (4)
  1. VINORELBINE TARTRATE [Suspect]
     Indication: NON-SMALL CELL LUNG CANCER
     Dosage: 25 MG/M2 / ON DAYS 1 AND 8 / INTRAVENOUS
     Route: 042
  2. CISPLATIN [Suspect]
     Indication: NON-SMALL CELL LUNG CANCER
     Dosage: 75 MG/M2 / ON DAY 1 / INTRAVENOUS
     Route: 042
  3. DEXAMETHASONE [Concomitant]
  4. ANTI-EMETIC [Concomitant]

REACTIONS (2)
  - ACUTE ABDOMEN [None]
  - FEBRILE NEUTROPENIA [None]
